FAERS Safety Report 13392821 (Version 4)
Quarter: 2017Q2

REPORT INFORMATION
  Report Type: Spontaneous
  Country: AR (occurrence: AR)
  Receive Date: 20170331
  Receipt Date: 20170508
  Transmission Date: 20170830
  Serious: Yes (Other)
  Sender: FDA-Public Use
  Company Number: AR-JNJFOC-20170328147

PATIENT
  Sex: Female

DRUGS (4)
  1. STELARA [Suspect]
     Active Substance: USTEKINUMAB
     Indication: PSORIATIC ARTHROPATHY
     Dosage: 15-MAR(YEAR UNSPECIFIED)
     Route: 058
     Dates: start: 20170315
  2. STELARA [Suspect]
     Active Substance: USTEKINUMAB
     Indication: PSORIATIC ARTHROPATHY
     Dosage: AT WEEK 0
     Route: 058
  3. STELARA [Suspect]
     Active Substance: USTEKINUMAB
     Indication: PSORIATIC ARTHROPATHY
     Dosage: 26-AUG(YEAR UNSPECIFIED)
     Route: 058
  4. STELARA [Suspect]
     Active Substance: USTEKINUMAB
     Indication: PSORIATIC ARTHROPATHY
     Route: 058
     Dates: start: 20161220

REACTIONS (12)
  - Psoriatic arthropathy [Not Recovered/Not Resolved]
  - Deformity [Unknown]
  - Hypertension [Unknown]
  - Psoriasis [Unknown]
  - Laryngitis [Unknown]
  - Obesity [Unknown]
  - Irritability [Unknown]
  - Hypersensitivity [Unknown]
  - Therapeutic response decreased [Unknown]
  - Cellulitis [Unknown]
  - Epistaxis [Unknown]
  - Pruritus generalised [Unknown]
